FAERS Safety Report 7270126-6 (Version None)
Quarter: 2011Q1

REPORT INFORMATION
  Report Type: 
  Country: None (occurrence: None)
  Receive Date: 20110202
  Receipt Date: 20110120
  Transmission Date: 20110831
  Serious: Yes (Other)
  Sender: FDA-Public Use
  Company Number: IT-BAYER-2011-006747

PATIENT
  Sex: Female

DRUGS (1)
  1. ASPIRIN [Suspect]
     Indication: HEADACHE
     Dosage: DAILY DOSE 2 DF
     Route: 048
     Dates: start: 20100701, end: 20100702

REACTIONS (2)
  - BLISTER [None]
  - PRURITUS [None]
